FAERS Safety Report 7741219-1 (Version None)
Quarter: 2011Q3

REPORT INFORMATION
  Report Type: 
  Country: None (occurrence: None)
  Receive Date: 20110909
  Receipt Date: 20110901
  Transmission Date: 20111222
  Serious: Yes (Hospitalization, Other)
  Sender: FDA-Public Use
  Company Number: PHHY2011IN77933

PATIENT
  Age: 21 Year
  Sex: Male

DRUGS (2)
  1. VALPROIC ACID [Suspect]
     Dosage: 30 G, (150?170 TABLETS) ONCE/SINGLE
     Route: 048
  2. VALPROIC ACID [Suspect]
     Dosage: 400 MG, BID
     Route: 048

REACTIONS (15)
  - AMMONIA INCREASED [None]
  - UNRESPONSIVE TO STIMULI [None]
  - COMA [None]
  - HEADACHE [None]
  - RESPIRATORY ACIDOSIS [None]
  - METABOLIC ACIDOSIS [None]
  - BLOOD SODIUM INCREASED [None]
  - AGITATION [None]
  - SOMNOLENCE [None]
  - COMA SCALE ABNORMAL [None]
  - INTENTIONAL OVERDOSE [None]
  - HEART RATE INCREASED [None]
  - MIOSIS [None]
  - BLOOD PRESSURE DECREASED [None]
  - BLOOD GLUCOSE DECREASED [None]
